FAERS Safety Report 20638726 (Version 1)
Quarter: 2022Q1

REPORT INFORMATION
  Report Type: Spontaneous
  Country: CA (occurrence: CA)
  Receive Date: 20220325
  Receipt Date: 20220325
  Transmission Date: 20220423
  Serious: Yes (Other)
  Sender: FDA-Public Use
  Company Number: CA-PFIZER INC-202200440588

PATIENT
  Age: 72 Year
  Sex: Male

DRUGS (1)
  1. CELECOXIB [Suspect]
     Active Substance: CELECOXIB
     Dosage: 1 DF
     Dates: start: 2019

REACTIONS (2)
  - Inflammatory bowel disease [Unknown]
  - Drug intolerance [Unknown]
